FAERS Safety Report 9819393 (Version 1)
Quarter: 2014Q1

REPORT INFORMATION
  Report Type: Spontaneous
  Country: GB (occurrence: GB)
  Receive Date: 20140115
  Receipt Date: 20140115
  Transmission Date: 20141002
  Serious: Yes (Other)
  Sender: FDA-Public Use
  Company Number: GB-ASTRAZENECA-2014SE01386

PATIENT
  Age: 47 Year
  Sex: Female

DRUGS (1)
  1. ZOLADEX [Suspect]
     Indication: ENDOMETRIOSIS
     Dosage: MONTHLY
     Route: 058

REACTIONS (3)
  - Cataract subcapsular [Unknown]
  - Cataract subcapsular [Unknown]
  - Visual acuity reduced [Unknown]
